FAERS Safety Report 10305891 (Version 1)
Quarter: 2014Q3

REPORT INFORMATION
  Report Type: Spontaneous
  Country: US (occurrence: None)
  Receive Date: 20140711
  Receipt Date: 20140711
  Transmission Date: 20150326
  Serious: Yes (Other)
  Sender: FDA-Public Use
  Company Number: 2014AP003557

PATIENT
  Age: 44 Year
  Sex: Male

DRUGS (2)
  1. RIZATRIPTAN BENZOATE. [Suspect]
     Active Substance: RIZATRIPTAN BENZOATE
     Indication: HEADACHE
     Dosage: TWO TABS OF RIZATRIPTAN PER WEEK FOR LAST FEW WEEKS
  2. TOPIRAMATE (TOPIRAMATE) [Concomitant]
     Active Substance: TOPIRAMATE

REACTIONS (1)
  - Renal infarct [None]
